FAERS Safety Report 16933293 (Version 1)
Quarter: 2019Q4

REPORT INFORMATION
  Report Type: Spontaneous
  Country: DK (occurrence: DK)
  Receive Date: 20191018
  Receipt Date: 20191018
  Transmission Date: 20200122
  Serious: Yes (Hospitalization)
  Sender: FDA-Public Use
  Company Number: DK-TEVA-2019-DK-1122125

PATIENT
  Age: 57 Year
  Sex: Male

DRUGS (1)
  1. PREGABALIN TEVA [Suspect]
     Active Substance: PREGABALIN
     Indication: NEURALGIA
     Dosage: STRENGTH: 75MG
     Route: 048
     Dates: start: 20180827, end: 20180829

REACTIONS (9)
  - Pain [Not Recovered/Not Resolved]
  - Erythema [Recovered/Resolved]
  - Pyoderma gangrenosum [Not Recovered/Not Resolved]
  - Erysipelas [Recovered/Resolved]
  - Peripheral swelling [Recovered/Resolved]
  - Hypersensitivity vasculitis [Recovered/Resolved]
  - Wound secretion [Recovered/Resolved]
  - Rash maculo-papular [Recovered/Resolved]
  - Pruritus [Recovered/Resolved]

NARRATIVE: CASE EVENT DATE: 201808
